FAERS Safety Report 25182434 (Version 1)
Quarter: 2025Q2

REPORT INFORMATION
  Report Type: Spontaneous
  Country: US (occurrence: US)
  Receive Date: 20250410
  Receipt Date: 20250410
  Transmission Date: 20250717
  Serious: No
  Sender: KINIKSA PHARMACEUTICALS
  Company Number: US-Kiniksa Pharmaceuticals Ltd.-2025KPU000017

PATIENT
  Age: 52 Year
  Sex: Female

DRUGS (2)
  1. ARCALYST [Suspect]
     Active Substance: RILONACEPT
     Indication: Pericarditis
     Dates: start: 20241227
  2. UNSPECIFIED INGREDIENT [Concomitant]
     Active Substance: UNSPECIFIED INGREDIENT
     Indication: Pericarditis

REACTIONS (13)
  - Pain [Not Recovered/Not Resolved]
  - Menstruation irregular [Unknown]
  - Fatigue [Unknown]
  - Arthralgia [Unknown]
  - Hyperhidrosis [Unknown]
  - Chills [Unknown]
  - Pulmonary congestion [Unknown]
  - Productive cough [Recovering/Resolving]
  - Blood pressure increased [Unknown]
  - Malaise [Unknown]
  - Chest discomfort [Unknown]
  - Upper respiratory tract infection [Unknown]
  - Decreased immune responsiveness [Unknown]

NARRATIVE: CASE EVENT DATE: 20240101
